FAERS Safety Report 12331154 (Version 1)
Quarter: 2016Q2

REPORT INFORMATION
  Report Type: Spontaneous
  Country: US (occurrence: None)
  Receive Date: 20160503
  Receipt Date: 20160503
  Transmission Date: 20160815
  Serious: No
  Sender: FDA-Public Use
  Company Number: None

PATIENT
  Age: 77 Year
  Sex: Female
  Weight: 54.89 kg

DRUGS (8)
  1. METHORTREXATE [Concomitant]
  2. AMLODIPINE BESYLATE. [Concomitant]
     Active Substance: AMLODIPINE BESYLATE
  3. ACETAMINOPHEN\HYDROCODONE BITARTRATE [Concomitant]
     Active Substance: ACETAMINOPHEN\HYDROCODONE BITARTRATE
  4. PREVACID [Concomitant]
     Active Substance: LANSOPRAZOLE
  5. LYRICA [Concomitant]
     Active Substance: PREGABALIN
  6. VALSARTAN 320MG [Suspect]
     Active Substance: VALSARTAN
     Indication: HYPERTENSION
     Route: 048
     Dates: start: 20151015, end: 20151029
  7. PREDNISONE. [Concomitant]
     Active Substance: PREDNISONE
  8. DIOVAN [Concomitant]
     Active Substance: VALSARTAN

REACTIONS (4)
  - Respiratory rate increased [None]
  - Fear [None]
  - Chest pain [None]
  - Pain in extremity [None]

NARRATIVE: CASE EVENT DATE: 20151029
